FAERS Safety Report 16681299 (Version 2)
Quarter: 2019Q3

REPORT INFORMATION
  Report Type: Spontaneous
  Country: PL (occurrence: PL)
  Receive Date: 20190808
  Receipt Date: 20190923
  Transmission Date: 20191004
  Serious: Yes (Death, Other)
  Sender: FDA-Public Use
  Company Number: PL-ROCHE-2370406

PATIENT
  Age: 71 Year
  Sex: Female

DRUGS (3)
  1. EBRANTIL [URAPIDIL] [Concomitant]
     Active Substance: URAPIDIL
     Route: 065
     Dates: start: 20190712, end: 20190712
  2. ACTILYSE [Suspect]
     Active Substance: ALTEPLASE
     Indication: CEREBRAL INFARCTION
     Route: 065
     Dates: start: 20190712, end: 20190712
  3. OMNIPAQUE [Suspect]
     Active Substance: IOHEXOL
     Indication: CEREBRAL INFARCTION
     Route: 042
     Dates: start: 20190712, end: 20190712

REACTIONS (6)
  - Blister [Unknown]
  - Macule [Unknown]
  - Cardiac arrest [Fatal]
  - Oedema mucosal [Unknown]
  - Pulseless electrical activity [Fatal]
  - Tongue oedema [Unknown]

NARRATIVE: CASE EVENT DATE: 20190712
